FAERS Safety Report 5447400-9 (Version None)
Quarter: 2007Q3

REPORT INFORMATION
  Report Type: 
  Country: None (occurrence: None)
  Receive Date: 20070905
  Receipt Date: 20070905
  Transmission Date: 20080115
  Serious: Yes (Hospitalization)
  Sender: FDA-Public Use
  Company Number: None

PATIENT
  Sex: Male
  Weight: 28.1 kg

DRUGS (1)
  1. PEG-ASPARAGINASE   750 UNITS/ML [Suspect]
     Indication: ACUTE LYMPHOCYTIC LEUKAEMIA
     Dosage: 2,500 UNITS  X3  IM
     Route: 030
     Dates: start: 20070625, end: 20070824

REACTIONS (4)
  - LIP SWELLING [None]
  - PERIORBITAL OEDEMA [None]
  - RASH PRURITIC [None]
  - URTICARIA [None]
